FAERS Safety Report 8557427-6 (Version None)
Quarter: 2012Q3

REPORT INFORMATION
  Report Type: 
  Country: None (occurrence: None)
  Receive Date: 20120801
  Receipt Date: 20120719
  Transmission Date: 20120928
  Serious: Yes (Hospitalization)
  Sender: FDA-Public Use
  Company Number: ZA-ELI_LILLY_AND_COMPANY-ZA201207006911

PATIENT
  Sex: Female

DRUGS (5)
  1. ASTHAVENT [Concomitant]
     Indication: BRONCHIAL DISORDER
     Dosage: 1 DF, BID
     Route: 055
     Dates: start: 20070101
  2. HUMALOG MIX 50/50 [Suspect]
     Indication: DIABETES MELLITUS
     Dosage: 42 U, TID
     Route: 058
     Dates: start: 20110314
  3. GLUCOPHAGE [Concomitant]
     Indication: DIABETES MELLITUS
     Dosage: 850 MG, TID
     Route: 048
     Dates: start: 20120712
  4. NEXIUM [Concomitant]
     Dosage: 40 MG, TID
     Route: 048
     Dates: start: 20070101
  5. SYMBICORT [Concomitant]
     Indication: BRONCHIAL DISORDER
     Dosage: 1 DF, PRN
     Route: 055
     Dates: start: 20070101

REACTIONS (2)
  - PNEUMONIA [None]
  - LUNG DISORDER [None]
